FAERS Safety Report 19446895 (Version 1)
Quarter: 2021Q2

REPORT INFORMATION
  Report Type: Spontaneous
  Country: US (occurrence: US)
  Receive Date: 20210622
  Receipt Date: 20210622
  Transmission Date: 20210717
  Serious: No
  Sender: FDA-Public Use
  Company Number: US-SA-2021SA202059

PATIENT
  Age: 51 Year
  Sex: Female

DRUGS (1)
  1. DUPIXENT [Suspect]
     Active Substance: DUPILUMAB
     Indication: DERMATITIS
     Route: 058
     Dates: start: 20190802

REACTIONS (7)
  - Lacrimation increased [Unknown]
  - Rhinorrhoea [Unknown]
  - Sneezing [Unknown]
  - Product use in unapproved indication [Unknown]
  - Head discomfort [Unknown]
  - Nasal congestion [Unknown]
  - Dysphonia [Unknown]

NARRATIVE: CASE EVENT DATE: 20190802
